FAERS Safety Report 8532272 (Version 4)
Quarter: 2012Q4

REPORT INFORMATION
  Report Type: 
  Country: JP (occurrence: JP)
  Receive Date: 20120426
  Receipt Date: 20121226
  Transmission Date: 20130627
  Serious: Yes (Hospitalization)
  Sender: FDA-Public Use
  Company Number: JP-JNJFOC-20120410324

PATIENT
  Age: 71 Year
  Sex: Female
  Weight: 28 kg

DRUGS (20)
  1. REMICADE [Suspect]
     Indication: RHEUMATOID ARTHRITIS
     Dosage: 5th dose
     Route: 042
     Dates: start: 20120117
  2. REMICADE [Suspect]
     Indication: RHEUMATOID ARTHRITIS
     Dosage: 5th dose
     Route: 042
     Dates: start: 20111025
  3. REMICADE [Suspect]
     Indication: RHEUMATOID ARTHRITIS
     Route: 042
     Dates: start: 20121113
  4. REMICADE [Suspect]
     Indication: RHEUMATOID ARTHRITIS
     Dosage: 5th dose
     Route: 042
     Dates: start: 20120312
  5. REMICADE [Suspect]
     Indication: RHEUMATOID ARTHRITIS
     Route: 042
     Dates: start: 20120619
  6. REMICADE [Suspect]
     Indication: RHEUMATOID ARTHRITIS
     Dosage: 5th dose
     Route: 042
     Dates: start: 20111121
  7. REMICADE [Suspect]
     Indication: RHEUMATOID ARTHRITIS
     Route: 042
     Dates: start: 20111011
  8. METHOTREXATE [Suspect]
     Indication: RHEUMATOID ARTHRITIS
     Route: 048
     Dates: start: 20050228
  9. THEODUR [Concomitant]
     Route: 048
     Dates: start: 20090224, end: 20090819
  10. THEODUR [Concomitant]
     Route: 048
     Dates: start: 20091118
  11. HOKUNALIN [Concomitant]
     Route: 065
     Dates: start: 20090224
  12. TALION [Concomitant]
     Route: 048
     Dates: start: 20090224
  13. KLARICID [Concomitant]
     Route: 048
     Dates: start: 20090224
  14. CELECOX [Concomitant]
     Indication: RHEUMATOID ARTHRITIS
     Route: 048
     Dates: start: 200909
  15. MEDICON [Concomitant]
     Route: 048
     Dates: start: 20100224
  16. SINGULAIR [Concomitant]
     Route: 048
     Dates: start: 20100616
  17. MUCODYNE [Concomitant]
     Route: 048
     Dates: start: 20101006
  18. PREDONINE [Concomitant]
     Indication: RHEUMATOID ARTHRITIS
     Route: 048
  19. NEUROTROPIN [Concomitant]
     Indication: RHEUMATOID ARTHRITIS
     Route: 048
  20. MOHRUS [Concomitant]
     Route: 065

REACTIONS (2)
  - Varicella [Recovered/Resolved]
  - Herpes zoster [Recovering/Resolving]
